FAERS Safety Report 23982531 (Version 1)
Quarter: 2024Q2

REPORT INFORMATION
  Report Type: Spontaneous
  Country: CN (occurrence: CN)
  Receive Date: 20240617
  Receipt Date: 20240617
  Transmission Date: 20240716
  Serious: Yes (Hospitalization)
  Sender: FDA-Public Use
  Company Number: None

PATIENT
  Age: 67 Year
  Sex: Female
  Weight: 59 kg

DRUGS (4)
  1. CYCLOPHOSPHAMIDE [Suspect]
     Active Substance: CYCLOPHOSPHAMIDE
     Indication: Breast cancer female
     Dosage: 0.8 G, ONE TIME IN ONE DAY, DILUTED WITH 30 ML OF SODIUM CHLORIDE (NS), INTRAVENOUS PUSH
     Route: 042
     Dates: start: 20240423, end: 20240423
  2. SODIUM CHLORIDE [Suspect]
     Active Substance: SODIUM CHLORIDE
     Indication: Medication dilution
     Dosage: 30 ML, ONE TIME IN ONE DAY, USED TO DILUTE 0.8 G OF CYCLOPHOSPHAMIDE, INTRAVENOUS PUSH
     Route: 042
     Dates: start: 20240423, end: 20240423
  3. DEXTROSE [Suspect]
     Active Substance: DEXTROSE\DEXTROSE MONOHYDRATE
     Indication: Medication dilution
     Dosage: UNK, ONE TIME IN ONE DAY, STRENGTH: 5%, USED TO DILUTE 120 MG OF EPIRUBICIN HYDROCHLORIDE
     Route: 041
     Dates: start: 20240423, end: 20240423
  4. EPIRUBICIN HYDROCHLORIDE [Suspect]
     Active Substance: EPIRUBICIN HYDROCHLORIDE
     Indication: Breast cancer female
     Dosage: 120 MG, ONE TIME IN ONE DAY, DILUTED WITH 5% GLUCOSE
     Route: 041
     Dates: start: 20240423, end: 20240423

REACTIONS (2)
  - Neutrophil count decreased [Recovering/Resolving]
  - White blood cell count decreased [Recovering/Resolving]

NARRATIVE: CASE EVENT DATE: 20240428
